FAERS Safety Report 23970898 (Version 1)
Quarter: 2024Q2

REPORT INFORMATION
  Report Type: Spontaneous
  Country: DE (occurrence: DE)
  Receive Date: 20240613
  Receipt Date: 20240613
  Transmission Date: 20240715
  Serious: No
  Sender: FDA-Public Use
  Company Number: DE-ALKEM LABORATORIES LIMITED-DE-ALKEM-2024-07396

PATIENT
  Age: 13 Year
  Sex: Male

DRUGS (2)
  1. EVEROLIMUS [Suspect]
     Active Substance: EVEROLIMUS
     Indication: Epilepsy
     Dosage: 1 MILLIGRAM/SQ. METER, QD (DAILY) (DURATION 4.9 YEARS)
     Route: 048
  2. SULTHIAME [Concomitant]
     Active Substance: SULTHIAME
     Indication: Epilepsy
     Dosage: UNK
     Route: 065

REACTIONS (1)
  - Adverse event [Unknown]
